FAERS Safety Report 18318262 (Version 1)
Quarter: 2020Q3

REPORT INFORMATION
  Report Type: Spontaneous
  Country: DK (occurrence: DK)
  Receive Date: 20200928
  Receipt Date: 20200928
  Transmission Date: 20201103
  Serious: Yes (Hospitalization)
  Sender: FDA-Public Use
  Company Number: DK-TEVA-2020-DK-1831537

PATIENT
  Age: 67 Year
  Sex: Male

DRUGS (8)
  1. DICLOXACILLIN [Suspect]
     Active Substance: DICLOXACILLIN
     Indication: DRUG PROVOCATION TEST
     Dosage: TITRATION WITH 555MG. RECEIVED 3 DOSES.
     Route: 048
     Dates: start: 20200813, end: 20200813
  2. LOSARTAN. [Concomitant]
     Active Substance: LOSARTAN
     Indication: HYPERTENSION
     Dosage: 50MG
     Route: 048
     Dates: start: 20180426
  3. MAGNESIUM HYDROXIDE. [Concomitant]
     Active Substance: MAGNESIUM HYDROXIDE
     Indication: CONSTIPATION
     Dosage: 1000MG
     Route: 048
     Dates: start: 20180323
  4. PARACETAMOL [Concomitant]
     Active Substance: ACETAMINOPHEN
     Indication: PAIN
     Dosage: 1000MG
     Route: 048
  5. CLOPIDOGREL [Concomitant]
     Active Substance: CLOPIDOGREL BISULFATE
     Indication: THROMBOSIS PROPHYLAXIS
     Dosage: 75MG
     Route: 048
     Dates: start: 20170901
  6. ATORVASTATIN [Concomitant]
     Active Substance: ATORVASTATIN
     Indication: HYPERCHOLESTEROLAEMIA
     Dosage: 80MG
     Route: 048
  7. AMITRIPTYLINE [Concomitant]
     Active Substance: AMITRIPTYLINE
     Indication: NEURALGIA
     Dosage: 10MG
     Route: 048
     Dates: start: 20190222
  8. ALFUZOSIN [Concomitant]
     Active Substance: ALFUZOSIN
     Indication: DYSURIA
     Dosage: 2.5MG
     Route: 048

REACTIONS (9)
  - Swollen tongue [Unknown]
  - Oropharyngeal pain [Unknown]
  - Periorbital oedema [Recovered/Resolved]
  - Hypersensitivity [Unknown]
  - Erythema [Unknown]
  - Palatal oedema [Unknown]
  - Sensation of foreign body [Recovered/Resolved]
  - Pruritus [Unknown]
  - Secretion discharge [Unknown]

NARRATIVE: CASE EVENT DATE: 202008
